FAERS Safety Report 12978958 (Version 1)
Quarter: 2016Q4

REPORT INFORMATION
  Report Type: Spontaneous
  Country: US (occurrence: US)
  Receive Date: 20161125
  Receipt Date: 20161125
  Transmission Date: 20170207
  Serious: No
  Sender: FDA-Public Use
  Company Number: None

PATIENT
  Age: 58 Year
  Sex: Female

DRUGS (8)
  1. MVI [Concomitant]
     Active Substance: VITAMINS
  2. NAPROXEN. [Concomitant]
     Active Substance: NAPROXEN
  3. LONSURF [Suspect]
     Active Substance: TIPIRACIL HYDROCHLORIDE\TRIFLURIDINE
     Indication: COLON CANCER
     Dosage: 3 X 20MG BID DAYS 1-5 + 8-12 PO
     Route: 048
     Dates: start: 20160730
  4. ATENOLOL. [Concomitant]
     Active Substance: ATENOLOL
  5. DICYCLOMINE [Concomitant]
     Active Substance: DICYCLOMINE HYDROCHLORIDE
  6. KCL [Concomitant]
     Active Substance: POTASSIUM CHLORIDE
  7. MIRTAZEPINE [Concomitant]
     Active Substance: MIRTAZAPINE
  8. QUETIAPINE. [Concomitant]
     Active Substance: QUETIAPINE

REACTIONS (2)
  - Musculoskeletal disorder [None]
  - Muscle spasms [None]
